FAERS Safety Report 8823708 (Version 1)
Quarter: 2012Q4

REPORT INFORMATION
  Report Type: 
  Country: US (occurrence: US)
  Receive Date: 20121003
  Receipt Date: 20121003
  Transmission Date: 20130627
  Serious: No
  Sender: FDA-Public Use
  Company Number: US-ASTRAZENECA-2012SE65143

PATIENT
  Age: 22 Year
  Sex: Male

DRUGS (5)
  1. SEROQUEL [Suspect]
     Indication: BIPOLAR I DISORDER
     Route: 048
  2. SEROQUEL [Suspect]
     Indication: BIPOLAR I DISORDER
     Route: 048
  3. SEROQUEL [Suspect]
     Indication: BIPOLAR I DISORDER
     Route: 048
  4. GEODON [Concomitant]
     Indication: ABDOMINAL DISCOMFORT
  5. ABILIFY [Concomitant]

REACTIONS (4)
  - Tachyphrenia [Unknown]
  - Depressed mood [Unknown]
  - Insomnia [Unknown]
  - Abdominal discomfort [Unknown]
